FAERS Safety Report 8284299-X (Version None)
Quarter: 2012Q2

REPORT INFORMATION
  Report Type: 
  Country: None (occurrence: None)
  Receive Date: 20120413
  Receipt Date: 20120224
  Transmission Date: 20120825
  Serious: No
  Sender: FDA-Public Use
  Company Number: US-ASTRAZENECA-2012SE12939

PATIENT
  Age: 72 Year
  Sex: Male
  Weight: 104.3 kg

DRUGS (7)
  1. TOCOPHERAL E [Concomitant]
  2. THIAMINE HCL [Concomitant]
  3. VIT E [Concomitant]
  4. PROSTATE [Concomitant]
  5. NEXIUM [Suspect]
     Indication: GASTROOESOPHAGEAL REFLUX DISEASE
     Route: 048
  6. SUNLINGUAL VIT B12 [Concomitant]
  7. MANY ALTERNATIVE, OTC MEDICATIONS [Concomitant]

REACTIONS (4)
  - DYSPEPSIA [None]
  - NEUROPATHY PERIPHERAL [None]
  - GASTROOESOPHAGEAL REFLUX DISEASE [None]
  - DRUG DOSE OMISSION [None]
